FAERS Safety Report 4492530-1 (Version None)
Quarter: 2004Q4

REPORT INFORMATION
  Report Type: 
  Country: None (occurrence: None)
  Receive Date: 20041029
  Receipt Date: 20041020
  Transmission Date: 20050328
  Serious: Yes (Hospitalization)
  Sender: FDA-Public Use
  Company Number: 2004CG02131

PATIENT
  Age: 60 Year
  Sex: Male
  Weight: 93 kg

DRUGS (4)
  1. OMEPRAZOLE [Suspect]
     Indication: GASTRIC ULCER HAEMORRHAGE
     Dosage: 20 MG QD PO
     Route: 048
     Dates: start: 20040831, end: 20040907
  2. IMOVANE [Suspect]
     Indication: SLEEP DISORDER
     Dosage: 7.5 MG QD PO
     Route: 048
     Dates: start: 20040903, end: 20040907
  3. XALATAN [Suspect]
     Indication: BORDERLINE GLAUCOMA
     Dates: start: 20040903, end: 20040908
  4. PREVISCAN [Suspect]
     Indication: PULMONARY EMBOLISM
     Dosage: 20 MG QD PO
     Route: 048
     Dates: start: 20040901, end: 20040907

REACTIONS (10)
  - DYSPNOEA [None]
  - INTRAOCULAR PRESSURE INCREASED [None]
  - LARYNGITIS [None]
  - MALAISE [None]
  - PALLOR [None]
  - PRURIGO [None]
  - SLEEP DISORDER [None]
  - TACHYCARDIA [None]
  - TREMOR [None]
  - URTICARIA GENERALISED [None]
